FAERS Safety Report 22122600 (Version 1)
Quarter: 2023Q1

REPORT INFORMATION
  Report Type: Spontaneous
  Country: JP (occurrence: JP)
  Receive Date: 20230321
  Receipt Date: 20230321
  Transmission Date: 20230417
  Serious: Yes (Other)
  Sender: FDA-Public Use
  Company Number: JP-SCALL-2023-JP-016996

PATIENT
  Sex: Male

DRUGS (2)
  1. DUTASTERIDE [Suspect]
     Active Substance: DUTASTERIDE
     Route: 065
  2. UNSPECIFIED INGREDIENT [Concomitant]
     Active Substance: UNSPECIFIED INGREDIENT
     Indication: Polymyalgia rheumatica
     Route: 048

REACTIONS (2)
  - Polymyalgia rheumatica [Fatal]
  - Myalgia [Fatal]
